FAERS Safety Report 6512335-7 (Version None)
Quarter: 2009Q4

REPORT INFORMATION
  Report Type: 
  Country: None (occurrence: None)
  Receive Date: 20091222
  Receipt Date: 20090702
  Transmission Date: 20100525
  Serious: No
  Sender: FDA-Public Use
  Company Number: US-ASTRAZENECA-2009UW18479

PATIENT
  Age: 80 Year
  Sex: Female
  Weight: 88.5 kg

DRUGS (7)
  1. CRESTOR [Suspect]
     Indication: BLOOD CHOLESTEROL INCREASED
     Route: 048
     Dates: start: 20090701
  2. ZOLOFT [Concomitant]
     Indication: FIBROMYALGIA
  3. SYNTHROID [Concomitant]
  4. VERAPAMIL [Concomitant]
     Indication: HYPERTENSION
  5. QUINAPRIL [Concomitant]
     Indication: HYPERTENSION
  6. MICARDIS [Concomitant]
     Indication: HYPERTENSION
  7. CYCLOBENZAPRINE [Concomitant]
     Indication: FIBROMYALGIA

REACTIONS (1)
  - DIARRHOEA [None]
